FAERS Safety Report 10158826 (Version 1)
Quarter: 2014Q2

REPORT INFORMATION
  Report Type: Spontaneous
  Country: US (occurrence: US)
  Receive Date: 20140508
  Receipt Date: 20140508
  Transmission Date: 20141212
  Serious: No
  Sender: FDA-Public Use
  Company Number: US-BIOGENIDEC-2014BI038880

PATIENT
  Age: 77 Year
  Sex: Male

DRUGS (8)
  1. TECFIDERA [Suspect]
     Indication: MULTIPLE SCLEROSIS
     Route: 048
     Dates: start: 20131107
  2. ASPIRIN [Concomitant]
  3. CYANOCOBALAMIN [Concomitant]
  4. JALYN [Concomitant]
  5. PANTOPRAZOLE SODIUM [Concomitant]
  6. VITAMIN B COMPLEX [Concomitant]
  7. VITAMIN D3 [Concomitant]
  8. FISH OIL [Concomitant]

REACTIONS (3)
  - Fatigue [Unknown]
  - Weight decreased [Unknown]
  - Decreased appetite [Unknown]
